FAERS Safety Report 23895712 (Version 3)
Quarter: 2025Q3

REPORT INFORMATION
  Report Type: Report from Study
  Country: CN (occurrence: CN)
  Receive Date: 20240524
  Receipt Date: 20250916
  Transmission Date: 20251021
  Serious: Yes (Hospitalization, Other)
  Sender: BAXTER
  Company Number: CN-BAXTER-2024BAX018760

PATIENT
  Age: 33 Year
  Sex: Male
  Weight: 64.5 kg

DRUGS (12)
  1. CYCLOPHOSPHAMIDE [Suspect]
     Active Substance: CYCLOPHOSPHAMIDE
     Indication: Diffuse large B-cell lymphoma
     Dosage: 1363.3 MG, EVERY 3 WK
     Route: 041
     Dates: start: 20240426, end: 20240426
  2. CYCLOPHOSPHAMIDE [Suspect]
     Active Substance: CYCLOPHOSPHAMIDE
     Dosage: 1342.16 MG, EVERY 3 WK
     Route: 041
     Dates: start: 20240524
  3. EPCORITAMAB [Suspect]
     Active Substance: EPCORITAMAB
     Indication: Diffuse large B-cell lymphoma
     Route: 058
     Dates: start: 20240426, end: 20240426
  4. EPCORITAMAB [Suspect]
     Active Substance: EPCORITAMAB
     Route: 058
     Dates: start: 20240524
  5. VINCRISTINE [Suspect]
     Active Substance: VINCRISTINE
     Indication: Diffuse large B-cell lymphoma
     Dosage: 2 MG, EVERY 3 WK
     Route: 041
     Dates: start: 20240426, end: 20240426
  6. VINCRISTINE [Suspect]
     Active Substance: VINCRISTINE
     Dosage: 2 MG, EVERY 3 WK
     Route: 041
     Dates: start: 20240524
  7. RITUXIMAB [Suspect]
     Active Substance: RITUXIMAB
     Indication: Diffuse large B-cell lymphoma
     Dosage: 681.65 MG, EVERY 3 WK
     Route: 041
     Dates: start: 20240425, end: 20240425
  8. RITUXIMAB [Suspect]
     Active Substance: RITUXIMAB
     Dosage: 671.08 MG, EVERY 3 WK
     Route: 041
     Dates: start: 20240524
  9. DOXORUBICIN [Suspect]
     Active Substance: DOXORUBICIN
     Indication: Diffuse large B-cell lymphoma
     Dosage: 90.84 MG, EVERY 3 WK
     Route: 041
     Dates: start: 20240426, end: 20240426
  10. DOXORUBICIN [Suspect]
     Active Substance: DOXORUBICIN
     Dosage: 89.48 MG, EVERY 3 WK
     Route: 041
     Dates: start: 20240524
  11. PREDNISONE [Suspect]
     Active Substance: PREDNISONE
     Indication: Diffuse large B-cell lymphoma
     Dosage: 100 MG C1-6, DAY 1-5, EVERY 1 DAYS
     Route: 048
     Dates: start: 20240425, end: 20240429
  12. PREDNISONE [Suspect]
     Active Substance: PREDNISONE
     Dosage: 100 MG C1-6, DAY 1-5, EVERY 1 DAYS
     Route: 048
     Dates: start: 20240524

REACTIONS (1)
  - Gastric haemorrhage [Recovered/Resolved]

NARRATIVE: CASE EVENT DATE: 20240501
